FAERS Safety Report 4366536-7 (Version None)
Quarter: 2004Q2

REPORT INFORMATION
  Report Type: 
  Country: None (occurrence: None)
  Receive Date: 20040527
  Receipt Date: 20040518
  Transmission Date: 20050107
  Serious: Yes (Other)
  Sender: FDA-Public Use
  Company Number: TR-MERCK-0405USA01514

PATIENT
  Age: 67 Year
  Sex: Male

DRUGS (2)
  1. PEPCID [Suspect]
     Route: 048
  2. GLICLAZIDE [Concomitant]
     Route: 048

REACTIONS (2)
  - GASTROINTESTINAL CANDIDIASIS [None]
  - UPPER GASTROINTESTINAL HAEMORRHAGE [None]
